FAERS Safety Report 19362522 (Version 2)
Quarter: 2021Q2

REPORT INFORMATION
  Report Type: Spontaneous
  Country: US (occurrence: US)
  Receive Date: 20210601
  Receipt Date: 20210617
  Transmission Date: 20210717
  Serious: Yes (Life-Threatening, Hospitalization)
  Sender: FDA-Public Use
  Company Number: US-TEVA-2021-US-1919570

PATIENT
  Age: 43 Year
  Sex: Female

DRUGS (10)
  1. LORAZEPAM. [Suspect]
     Active Substance: LORAZEPAM
     Indication: OVERDOSE
     Dosage: 10MG OVER 3 H
     Route: 065
  2. DIPHENHYDRAMINE. [Suspect]
     Active Substance: DIPHENHYDRAMINE
     Indication: AGITATION
  3. LORAZEPAM. [Suspect]
     Active Substance: LORAZEPAM
     Indication: AGITATION
  4. HALOPERIDOL. [Suspect]
     Active Substance: HALOPERIDOL
     Indication: OVERDOSE
     Dosage: 10MG OVER 3 H
     Route: 065
  5. DIPHENHYDRAMINE. [Suspect]
     Active Substance: DIPHENHYDRAMINE
     Indication: OVERDOSE
     Dosage: 50MG OVER 3 H
     Route: 065
  6. NALOXONE [Suspect]
     Active Substance: NALOXONE
     Indication: DRUG ABUSE
     Dosage: 4MG AND RECEIVED 24MG OF NALOXONE; 1 + 5 ADDITIONAL CARTRIDGES WITHOUT A PAUSE
     Route: 045
  7. NALOXONE [Suspect]
     Active Substance: NALOXONE
     Indication: DRUG ABUSE
  8. HALOPERIDOL. [Suspect]
     Active Substance: HALOPERIDOL
     Indication: AGITATION
  9. BUPRENORPHINE. [Suspect]
     Active Substance: BUPRENORPHINE
     Indication: OVERDOSE
     Dosage: 1.2MG OVER 3 H
     Route: 042
  10. BUPRENORPHINE. [Suspect]
     Active Substance: BUPRENORPHINE
     Indication: AGITATION

REACTIONS (6)
  - Drug ineffective [Unknown]
  - Agitation [Recovered/Resolved]
  - Overdose [Unknown]
  - Tachycardia [Recovered/Resolved]
  - Tachypnoea [Recovered/Resolved]
  - Drug withdrawal syndrome [Recovered/Resolved]
